FAERS Safety Report 6377966-6 (Version None)
Quarter: 2009Q3

REPORT INFORMATION
  Report Type: 
  Country: None (occurrence: None)
  Receive Date: 20090925
  Receipt Date: 20090916
  Transmission Date: 20100115
  Serious: Yes (Hospitalization, Other)
  Sender: FDA-Public Use
  Company Number: PHHY2009BR40176

PATIENT
  Age: 64 Year
  Sex: Female

DRUGS (2)
  1. DIOVAN TRIPLE [Suspect]
     Indication: HYPERTENSION
  2. CYCLOSPORINE [Concomitant]
     Indication: TRANSPLANT
     Dosage: 100MG 6 TABLETS DAILY
     Route: 048

REACTIONS (2)
  - DIARRHOEA [None]
  - GRAFT VERSUS HOST DISEASE [None]
